FAERS Safety Report 12964344 (Version 1)
Quarter: 2016Q4

REPORT INFORMATION
  Report Type: Spontaneous
  Country: US (occurrence: US)
  Receive Date: 20161122
  Receipt Date: 20161122
  Transmission Date: 20170207
  Serious: No
  Sender: FDA-Public Use
  Company Number: US-PFIZER INC-2016536695

PATIENT
  Age: 57 Year
  Sex: Female
  Weight: 68.27 kg

DRUGS (1)
  1. CELEBREX [Suspect]
     Active Substance: CELECOXIB
     Indication: RHEUMATOID ARTHRITIS
     Dosage: UNK, TWICE A DAY
     Dates: start: 201602, end: 201602

REACTIONS (1)
  - Abdominal pain upper [Recovered/Resolved]

NARRATIVE: CASE EVENT DATE: 201602
